FAERS Safety Report 9817104 (Version 2)
Quarter: 2014Q1

REPORT INFORMATION
  Report Type: Spontaneous
  Country: US (occurrence: US)
  Receive Date: 20140114
  Receipt Date: 20140307
  Transmission Date: 20141002
  Serious: Yes (Life-Threatening, Hospitalization)
  Sender: FDA-Public Use
  Company Number: PHHY2014US003224

PATIENT
  Age: 85 Year
  Sex: Female

DRUGS (5)
  1. VALSARTAN [Suspect]
  2. SOTALOL [Interacting]
  3. SPIRONOLACTONE [Interacting]
  4. TRIMETOPRIM-SULFAMETHOXAZOLE [Interacting]
     Indication: URINARY TRACT INFECTION
     Dosage: UNK
  5. WARFARIN [Interacting]

REACTIONS (7)
  - Hyperkalaemia [Recovered/Resolved]
  - Bradycardia [Recovered/Resolved]
  - Electrocardiogram QRS complex prolonged [Recovered/Resolved]
  - Electrocardiogram T wave amplitude increased [Recovered/Resolved]
  - Bundle branch block left [Recovered/Resolved]
  - Asthenia [Recovered/Resolved]
  - Nodal rhythm [Recovered/Resolved]
